FAERS Safety Report 9790962 (Version 3)
Quarter: 2014Q1

REPORT INFORMATION
  Report Type: Report from Study
  Country: NL (occurrence: NL)
  Receive Date: 20131231
  Receipt Date: 20140307
  Transmission Date: 20141002
  Serious: Yes (Hospitalization, Other)
  Sender: FDA-Public Use
  Company Number: NL-ABBVIE-13P-114-1076779-00

PATIENT
  Age: 53 Year
  Sex: Female
  Weight: 86 kg

DRUGS (1)
  1. LUCRIN [Suspect]
     Indication: MENORRHAGIA
     Route: 058
     Dates: start: 20121025, end: 20131029

REACTIONS (5)
  - Menorrhagia [Recovered/Resolved]
  - Injection site mass [Not Recovered/Not Resolved]
  - Weight increased [Recovered/Resolved]
  - Weight decreased [Not Recovered/Not Resolved]
  - Menorrhagia [Not Recovered/Not Resolved]
